FAERS Safety Report 23661836 (Version 2)
Quarter: 2024Q2

REPORT INFORMATION
  Report Type: Spontaneous
  Country: US (occurrence: US)
  Receive Date: 20240322
  Receipt Date: 20240503
  Transmission Date: 20240716
  Serious: No
  Sender: FDA-Public Use
  Company Number: US-GSK-US2024AMR033898

PATIENT
  Sex: Male
  Weight: 68 kg

DRUGS (1)
  1. ALBUTEROL SULFATE [Suspect]
     Active Substance: ALBUTEROL SULFATE
     Indication: Product used for unknown indication
     Dosage: UNK (90 MCG, 18G/200 METERED)
     Dates: start: 20240123

REACTIONS (1)
  - Wrong technique in device usage process [Unknown]
